FAERS Safety Report 21004986 (Version 1)
Quarter: 2022Q2

REPORT INFORMATION
  Report Type: Spontaneous
  Country: US (occurrence: None)
  Receive Date: 20220623
  Receipt Date: 20220623
  Transmission Date: 20220721
  Serious: Yes (unspecified)
  Sender: FDA-Public Use
  Company Number: None

PATIENT
  Age: 36 Year
  Sex: Female
  Weight: 77.11 kg

DRUGS (1)
  1. TRICHLOROACETIC ACID [Suspect]
     Active Substance: TRICHLOROACETIC ACID
     Indication: Solar lentigo
     Dosage: OTHER STRENGTH : 100%;?FREQUENCY : AS NEEDED;?
     Route: 061
     Dates: start: 20211110, end: 20211110

REACTIONS (1)
  - Application site erosion [None]

NARRATIVE: CASE EVENT DATE: 20211110
